FAERS Safety Report 11080015 (Version 2)
Quarter: 2015Q3

REPORT INFORMATION
  Report Type: Spontaneous
  Country: IT (occurrence: IT)
  Receive Date: 20150430
  Receipt Date: 20150820
  Transmission Date: 20151125
  Serious: Yes (Hospitalization)
  Sender: FDA-Public Use
  Company Number: IT-ABBVIE-15P-083-1383943-00

PATIENT
  Age: 18 Year
  Sex: Male

DRUGS (1)
  1. KLACID [Suspect]
     Active Substance: CLARITHROMYCIN
     Indication: VIRAL TONSILLITIS
     Dosage: DAILY DOSE: 500 MG; FORM STRENGTH: 500 MG/10ML
     Route: 042
     Dates: start: 20150415, end: 20150420

REACTIONS (1)
  - Infusion site thrombosis [Unknown]

NARRATIVE: CASE EVENT DATE: 20150420
